FAERS Safety Report 18556645 (Version 1)
Quarter: 2020Q4

REPORT INFORMATION
  Report Type: Spontaneous
  Country: US (occurrence: US)
  Receive Date: 20201128
  Receipt Date: 20201128
  Transmission Date: 20210114
  Serious: No
  Sender: FDA-Public Use
  Company Number: NVSC2020US313583

PATIENT
  Sex: Female

DRUGS (1)
  1. VIVELLE-DOT [Suspect]
     Active Substance: ESTRADIOL
     Indication: PRODUCT USED FOR UNKNOWN INDICATION
     Dosage: 0.07 MG
     Route: 065

REACTIONS (4)
  - Pruritus [Unknown]
  - Adverse reaction [Unknown]
  - Abdominal discomfort [Unknown]
  - Dyspepsia [Unknown]
